FAERS Safety Report 16390066 (Version 2)
Quarter: 2019Q2

REPORT INFORMATION
  Report Type: Report from Study
  Country: CO (occurrence: CO)
  Receive Date: 20190604
  Receipt Date: 20190611
  Transmission Date: 20190711
  Serious: Yes (Other)
  Sender: FDA-Public Use
  Company Number: PHHY2019CO075199

PATIENT
  Sex: Female

DRUGS (1)
  1. TASIGNA [Suspect]
     Active Substance: NILOTINIB
     Indication: CHRONIC MYELOID LEUKAEMIA
     Dosage: 800 MG, QD
     Route: 048
     Dates: start: 20180405

REACTIONS (9)
  - Vision blurred [Unknown]
  - Syncope [Unknown]
  - Dizziness [Not Recovered/Not Resolved]
  - Decreased appetite [Unknown]
  - Inappropriate schedule of product administration [Unknown]
  - General physical health deterioration [Unknown]
  - Headache [Unknown]
  - Nervous system disorder [Unknown]
  - Somnolence [Not Recovered/Not Resolved]
